FAERS Safety Report 14074364 (Version 2)
Quarter: 2017Q4

REPORT INFORMATION
  Report Type: Spontaneous
  Country: FI (occurrence: FI)
  Receive Date: 20171011
  Receipt Date: 20171106
  Transmission Date: 20180321
  Serious: Yes (Other)
  Sender: FDA-Public Use
  Company Number: FI-GLAXOSMITHKLINE-FI2017GSK155884

PATIENT
  Age: 66 Year
  Sex: Female

DRUGS (4)
  1. BRICANYL [Concomitant]
     Active Substance: TERBUTALINE SULFATE
     Indication: PRODUCT USED FOR UNKNOWN INDICATION
     Dosage: UNK
     Route: 055
     Dates: start: 20170907
  2. RELVAR ELLIPTA [Suspect]
     Active Substance: FLUTICASONE FUROATE\VILANTEROL TRIFENATATE
     Indication: ASTHMA
     Dosage: 1 DF, 1D
     Route: 055
     Dates: start: 20170907, end: 20170922
  3. MONTELUKASTUM NATRICUM [Concomitant]
     Dosage: 10 MG, 1D
     Route: 048
  4. ERDOPECT [Concomitant]
     Indication: PRODUCT USED FOR UNKNOWN INDICATION
     Dosage: 600 MG, 1D
     Route: 048
     Dates: start: 20170907, end: 20170922

REACTIONS (14)
  - Oropharyngeal pain [Recovering/Resolving]
  - Epistaxis [Recovering/Resolving]
  - Purpura [Recovered/Resolved]
  - Bronchitis [Recovering/Resolving]
  - Fatigue [Recovering/Resolving]
  - Ear pain [Recovering/Resolving]
  - Arthralgia [Recovering/Resolving]
  - Myalgia [Recovering/Resolving]
  - Pyrexia [Recovering/Resolving]
  - Productive cough [Recovering/Resolving]
  - Pharyngeal haemorrhage [Recovering/Resolving]
  - Back pain [Recovering/Resolving]
  - Dysphonia [Recovering/Resolving]
  - Nasopharyngitis [Recovering/Resolving]

NARRATIVE: CASE EVENT DATE: 201709
